FAERS Safety Report 24762362 (Version 1)
Quarter: 2024Q4

REPORT INFORMATION
  Report Type: Spontaneous
  Country: FR (occurrence: FR)
  Receive Date: 20241221
  Receipt Date: 20241221
  Transmission Date: 20250115
  Serious: Yes (Death, Other)
  Sender: AUROBINDO
  Company Number: FR-AFSSAPS-CN2024001124

PATIENT
  Age: 64 Year
  Sex: Male

DRUGS (14)
  1. ALPRAZOLAM [Suspect]
     Active Substance: ALPRAZOLAM
     Indication: Autism spectrum disorder
     Dosage: 0.5 MILLIGRAM, TWO TIMES A DAY [MATIN ET MIDI]
     Route: 048
     Dates: start: 202003
  2. ALPRAZOLAM [Suspect]
     Active Substance: ALPRAZOLAM
     Indication: Behaviour disorder
  3. CYAMEMAZINE [Suspect]
     Active Substance: CYAMEMAZINE
     Indication: Autism spectrum disorder
     Dosage: 25 MILLIGRAM, ONCE A DAY [MATIN]
     Route: 048
     Dates: start: 202309
  4. CYAMEMAZINE [Suspect]
     Active Substance: CYAMEMAZINE
     Indication: Behaviour disorder
  5. OLANZAPINE [Suspect]
     Active Substance: OLANZAPINE
     Indication: Autism spectrum disorder
     Dosage: 10 MILLIGRAM, TWO TIMES A DAY [MATIN ET SOIR]
     Route: 065
     Dates: start: 202003
  6. OLANZAPINE [Suspect]
     Active Substance: OLANZAPINE
     Indication: Behaviour disorder
  7. VALPROIC ACID [Suspect]
     Active Substance: VALPROIC ACID
     Indication: Autism spectrum disorder
     Dosage: 500 MILLIGRAM, ONCE A DAY [MATIN]
     Route: 048
     Dates: start: 202005
  8. VALPROIC ACID [Suspect]
     Active Substance: VALPROIC ACID
     Indication: Behaviour disorder
     Dosage: 1000 MILLIGRAM, ONCE A DAY [SOIR]
     Route: 048
     Dates: start: 202005
  9. HALOPERIDOL [Suspect]
     Active Substance: HALOPERIDOL
     Indication: Autism spectrum disorder
     Dosage: 5 MILLIGRAM, 3 TIMES A DAY [MATIN, MIDI ET SOIR]
     Route: 065
     Dates: start: 202003
  10. HALOPERIDOL [Suspect]
     Active Substance: HALOPERIDOL
     Indication: Behaviour disorder
  11. ALFUZOSIN [Concomitant]
     Active Substance: ALFUZOSIN
     Indication: Product used for unknown indication
     Dosage: UNK
     Route: 065
  12. HERBALS\SAW PALMETTO [Concomitant]
     Active Substance: HERBALS\SAW PALMETTO
     Indication: Product used for unknown indication
     Dosage: UNK
     Route: 065
  13. Macrogol 4000 arrow [Concomitant]
     Indication: Product used for unknown indication
     Dosage: UNK
     Route: 065
     Dates: start: 202203
  14. CHOLECALCIFEROL [Concomitant]
     Active Substance: CHOLECALCIFEROL
     Indication: Product used for unknown indication
     Dosage: UNK
     Route: 065

REACTIONS (1)
  - Choking [Fatal]

NARRATIVE: CASE EVENT DATE: 20241022
